FAERS Safety Report 23765925 (Version 4)
Quarter: 2024Q3

REPORT INFORMATION
  Report Type: Spontaneous
  Country: US (occurrence: US)
  Receive Date: 20240421
  Receipt Date: 20240814
  Transmission Date: 20241017
  Serious: No
  Sender: BRISTOL MYERS SQUIBB
  Company Number: US-BRISTOL-MYERS SQUIBB COMPANY-2024-061649

PATIENT
  Age: 76 Year
  Sex: Male

DRUGS (1)
  1. POMALYST [Suspect]
     Active Substance: POMALIDOMIDE
     Indication: Plasma cell myeloma
     Route: 048
     Dates: start: 20240418

REACTIONS (6)
  - Pain [Unknown]
  - Asthenia [Unknown]
  - Constipation [Unknown]
  - Treatment noncompliance [Unknown]
  - Diarrhoea [Unknown]
  - Fatigue [Unknown]
